FAERS Safety Report 21096712 (Version 1)
Quarter: 2022Q3

REPORT INFORMATION
  Report Type: Spontaneous
  Country: FI (occurrence: FI)
  Receive Date: 20220718
  Receipt Date: 20220718
  Transmission Date: 20221027
  Serious: Yes (Other)
  Sender: FDA-Public Use
  Company Number: FI-PADAGIS-2022PAD00085

PATIENT

DRUGS (2)
  1. DOXORUBICIN [Suspect]
     Active Substance: DOXORUBICIN
     Indication: Osteosarcoma
     Dosage: CUMULATIVE DOSE OF 300 MG/M2
     Route: 065
  2. DOXORUBICIN [Suspect]
     Active Substance: DOXORUBICIN
     Dosage: CUMULATIVE DOSE OF 450 MG/M2
     Route: 065

REACTIONS (2)
  - Cardiomyopathy [None]
  - Product use in unapproved indication [Unknown]
